FAERS Safety Report 5586299-7 (Version None)
Quarter: 2008Q1

REPORT INFORMATION
  Report Type: 
  Country: None (occurrence: None)
  Receive Date: 20080107
  Receipt Date: 20080107
  Transmission Date: 20080703
  Serious: Yes (Other)
  Sender: FDA-Public Use
  Company Number: None

PATIENT
  Age: 63 Year
  Sex: Male
  Weight: 55.7924 kg

DRUGS (1)
  1. ANTIFUNGAL/ATHLETIC FOOT POWDER   TOLNAFTATE  1%   LONG DRUG STORE [Suspect]
     Indication: RASH
     Dosage: 3.5   DAILY  TOP
     Route: 061
     Dates: start: 20071226, end: 20071227

REACTIONS (6)
  - DRUG HYPERSENSITIVITY [None]
  - PRURITUS [None]
  - RASH [None]
  - SWELLING [None]
  - ULCER [None]
  - WOUND SECRETION [None]
